FAERS Safety Report 17153451 (Version 10)
Quarter: 2021Q1

REPORT INFORMATION
  Report Type: Report from Study
  Country: US (occurrence: US)
  Receive Date: 20191213
  Receipt Date: 20210120
  Transmission Date: 20210419
  Serious: Yes (Hospitalization, Other)
  Sender: FDA-Public Use
  Company Number: NVSC2019US017333

PATIENT
  Sex: Female

DRUGS (2)
  1. TETANUS TOXOID ADSORBED (VACCINE) [Suspect]
     Active Substance: CLOSTRIDIUM TETANI TOXOID ANTIGEN (FORMALDEHYDE INACTIVATED)
     Indication: PRODUCT USED FOR UNKNOWN INDICATION
     Dosage: UNK
     Route: 065
  2. MAYZENT [Suspect]
     Active Substance: SIPONIMOD
     Indication: MULTIPLE SCLEROSIS
     Dosage: 2 MG, QD
     Route: 048

REACTIONS (14)
  - Dyspnoea [Recovered/Resolved with Sequelae]
  - Myalgia [Recovered/Resolved with Sequelae]
  - Somnolence [Recovered/Resolved with Sequelae]
  - Wound [Unknown]
  - Fatigue [Recovered/Resolved with Sequelae]
  - SARS-CoV-2 test positive [Recovered/Resolved with Sequelae]
  - Cough [Recovered/Resolved with Sequelae]
  - Foot fracture [Unknown]
  - Breast mass [Unknown]
  - Open fracture [Unknown]
  - Acute respiratory distress syndrome [Recovered/Resolved with Sequelae]
  - Pyrexia [Recovered/Resolved with Sequelae]
  - Skin laceration [Unknown]
  - Illness [Unknown]
